FAERS Safety Report 10081793 (Version 1)
Quarter: 2014Q2

REPORT INFORMATION
  Report Type: Spontaneous
  Country: ES (occurrence: ES)
  Receive Date: 20140416
  Receipt Date: 20140416
  Transmission Date: 20141212
  Serious: Yes (Other)
  Sender: FDA-Public Use
  Company Number: PHHY2014ES042348

PATIENT
  Age: 71 Year
  Sex: Female

DRUGS (7)
  1. FLECAINIDE [Suspect]
     Dosage: 100 MG, BID
     Route: 048
  2. CYCLOSPORINE [Concomitant]
  3. MYCOPHENOLATE MOFETIL [Concomitant]
  4. PREDNISONE [Concomitant]
  5. ASPIRIN [Concomitant]
  6. ATENOLOL [Concomitant]
     Dosage: 50 MG, DAILY
  7. SODIUM HEPARIN [Concomitant]
     Route: 042

REACTIONS (5)
  - Myoclonus [Recovered/Resolved]
  - Chest discomfort [Unknown]
  - Activities of daily living impaired [Unknown]
  - Headache [Unknown]
  - Dizziness [Unknown]
